FAERS Safety Report 10022752 (Version 1)
Quarter: 2014Q1

REPORT INFORMATION
  Report Type: Spontaneous
  Country: TW (occurrence: TW)
  Receive Date: 20140319
  Receipt Date: 20140319
  Transmission Date: 20141002
  Serious: Yes (Other)
  Sender: FDA-Public Use
  Company Number: TW-WATSON-2014-04882

PATIENT
  Age: 50 Year
  Sex: Female

DRUGS (3)
  1. VALPROIC ACID (UNKNOWN) [Suspect]
     Indication: BIPOLAR I DISORDER
     Dosage: 1400 MG, DAILY
     Route: 048
  2. VALPROIC ACID (UNKNOWN) [Suspect]
     Dosage: 1000 UNK, UNK
  3. RISPERIDONE [Concomitant]
     Indication: BIPOLAR I DISORDER
     Dosage: 2 MG, DAILY
     Route: 065

REACTIONS (1)
  - Pancytopenia [Recovered/Resolved]
